FAERS Safety Report 19680688 (Version 1)
Quarter: 2021Q3

REPORT INFORMATION
  Report Type: Spontaneous
  Country: NG (occurrence: NG)
  Receive Date: 20210810
  Receipt Date: 20210810
  Transmission Date: 20211014
  Serious: Yes (Death)
  Sender: FDA-Public Use
  Company Number: NG-PFIZER INC-202100957262

PATIENT
  Age: 30 Year
  Sex: Male

DRUGS (10)
  1. LOPINAVIR AND RITONAVIR [Suspect]
     Active Substance: LOPINAVIR\RITONAVIR
     Indication: PULMONARY TUBERCULOSIS
  2. LOPINAVIR AND RITONAVIR [Suspect]
     Active Substance: LOPINAVIR\RITONAVIR
     Indication: COVID-19
     Dosage: UNK
  3. QUADRUPLE [BETAMETHASONE\CLIOQUINOL\GENTAMICIN\TOLNAFTATE] [Suspect]
     Active Substance: BETAMETHASONE\CLIOQUINOL\GENTAMICIN\TOLNAFTATE
     Indication: PULMONARY TUBERCULOSIS
     Dosage: UNK
  4. CLEXANE [Suspect]
     Active Substance: ENOXAPARIN SODIUM
     Dosage: UNK
  5. VITAMIN C [Suspect]
     Active Substance: ASCORBIC ACID
     Indication: COVID-19
     Dosage: UNK
  6. HYDROCORTISONE SODIUM SUCCINATE [Suspect]
     Active Substance: HYDROCORTISONE SODIUM SUCCINATE
     Indication: COVID-19
     Dosage: UNK
     Route: 042
  7. PYRIDOXINE [Suspect]
     Active Substance: PYRIDOXINE
     Indication: COVID-19
     Dosage: UNK
  8. ZINC SULFATE. [Suspect]
     Active Substance: ZINC SULFATE
     Indication: COVID-19
     Dosage: UNK
  9. AZITHROMYCIN ANHYDROUS. [Suspect]
     Active Substance: AZITHROMYCIN ANHYDROUS
     Indication: COVID-19
     Dosage: UNK
  10. CLEXANE [Suspect]
     Active Substance: ENOXAPARIN SODIUM
     Indication: COVID-19
     Dosage: UNK

REACTIONS (2)
  - Drug ineffective for unapproved indication [Fatal]
  - Off label use [Fatal]
